FAERS Safety Report 9428214 (Version 1)
Quarter: 2013Q3

REPORT INFORMATION
  Report Type: Spontaneous
  Country: US (occurrence: US)
  Receive Date: 20130730
  Receipt Date: 20130730
  Transmission Date: 20140515
  Serious: No
  Sender: FDA-Public Use
  Company Number: US-GLAXOSMITHKLINE-A0984792A

PATIENT
  Age: 49 Year
  Sex: Male

DRUGS (5)
  1. ZANTAC [Suspect]
     Indication: PRODUCT USED FOR UNKNOWN INDICATION
     Route: 048
  2. LORTAB [Concomitant]
  3. IBUPROFEN [Concomitant]
  4. BACLOFEN [Concomitant]
  5. LISINOPRIL [Concomitant]

REACTIONS (3)
  - Fall [Unknown]
  - Injury [Unknown]
  - Drug screen positive [Unknown]
